FAERS Safety Report 5310428-3 (Version None)
Quarter: 2007Q2

REPORT INFORMATION
  Report Type: 
  Country: None (occurrence: None)
  Receive Date: 20070427
  Receipt Date: 20070416
  Transmission Date: 20071010
  Serious: Yes (Other)
  Sender: FDA-Public Use
  Company Number: BR-PFIZER INC-2007032142

PATIENT
  Age: 38 Year
  Sex: Male

DRUGS (6)
  1. TRICEROL [Suspect]
     Indication: BLOOD TRIGLYCERIDES
     Route: 048
     Dates: start: 20060101, end: 20060101
  2. ATORVASTATIN CALCIUM [Suspect]
  3. BEZAFIBRATE [Suspect]
     Indication: BLOOD TRIGLYCERIDES
  4. CLONAZEPAM [Concomitant]
     Route: 048
  5. PHENOBARBITAL TAB [Concomitant]
     Route: 048
  6. RISPERDAL [Concomitant]
     Route: 048

REACTIONS (6)
  - ABDOMINAL PAIN [None]
  - BLOOD TRIGLYCERIDES INCREASED [None]
  - GASTRITIS [None]
  - INSOMNIA [None]
  - MALAISE [None]
  - NERVOUS SYSTEM DISORDER [None]
